FAERS Safety Report 4300932-9 (Version None)
Quarter: 2004Q1

REPORT INFORMATION
  Report Type: 
  Country: None (occurrence: None)
  Receive Date: 20040219
  Receipt Date: 20040209
  Transmission Date: 20041129
  Serious: No
  Sender: FDA-Public Use
  Company Number: 2003188516PL

PATIENT
  Age: 11 Year
  Sex: Male

DRUGS (7)
  1. CAMPTOSAR [Suspect]
     Indication: NEOPLASM
     Dosage: 24 MG, CYCLIC, IV
     Route: 042
     Dates: start: 20031028, end: 20031108
  2. SULFAMETHOXAZOLE + TRIMETHOPRIM [Concomitant]
  3. NYSTATIN [Concomitant]
  4. VITAMIN D3 [Concomitant]
  5. MAALOX [Concomitant]
  6. CALCIUM [Concomitant]
  7. ETHAMSYLATE (ETAMSILATE) [Concomitant]

REACTIONS (8)
  - BLOOD POTASSIUM DECREASED [None]
  - CONVULSION [None]
  - DISEASE PROGRESSION [None]
  - HAEMATOCRIT DECREASED [None]
  - HAEMOGLOBIN DECREASED [None]
  - PNEUMONITIS [None]
  - PYREXIA [None]
  - RED BLOOD CELL COUNT DECREASED [None]
